FAERS Safety Report 5200114-2 (Version None)
Quarter: 2007Q1

REPORT INFORMATION
  Report Type: 
  Country: None (occurrence: None)
  Receive Date: 20070105
  Receipt Date: 20070104
  Transmission Date: 20070707
  Serious: Yes (Other)
  Sender: FDA-Public Use
  Company Number: DE-GLAXOSMITHKLINE-D0049894A

PATIENT
  Sex: Female

DRUGS (1)
  1. HYCAMTIN [Suspect]
     Indication: OVARIAN CANCER RECURRENT
     Route: 065
     Dates: start: 20060109, end: 20060502

REACTIONS (2)
  - MALIGNANT PLEURAL EFFUSION [None]
  - NAUSEA [None]
